FAERS Safety Report 7469653-8 (Version None)
Quarter: 2011Q2

REPORT INFORMATION
  Report Type: 
  Country: None (occurrence: None)
  Receive Date: 20110510
  Receipt Date: 20110502
  Transmission Date: 20111010
  Serious: Yes (Hospitalization)
  Sender: FDA-Public Use
  Company Number: FR-SANOFI-AVENTIS-2011SA027983

PATIENT
  Age: 68 Year
  Sex: Male

DRUGS (2)
  1. BRISTOPEN [Concomitant]
     Route: 042
     Dates: start: 20110206
  2. RIFADIN [Suspect]
     Route: 042
     Dates: start: 20110206, end: 20110211

REACTIONS (3)
  - BLOOD CREATININE INCREASED [None]
  - PANCREATITIS ACUTE [None]
  - BILIRUBIN CONJUGATED INCREASED [None]
